FAERS Safety Report 9455613 (Version 2)
Quarter: 2013Q3

REPORT INFORMATION
  Report Type: Spontaneous
  Country: US (occurrence: US)
  Receive Date: 20130813
  Receipt Date: 20130920
  Transmission Date: 20140515
  Serious: No
  Sender: FDA-Public Use
  Company Number: US-PFIZER INC-2013232136

PATIENT
  Age: 40 Year
  Sex: Male
  Weight: 142.86 kg

DRUGS (1)
  1. DEPO-TESTOSTERONE [Suspect]
     Indication: BLOOD TESTOSTERONE DECREASED
     Dosage: 200 MG/ML, WEEKLY
     Dates: start: 20130401

REACTIONS (1)
  - Blood testosterone abnormal [Unknown]
